FAERS Safety Report 9055803 (Version 1)
Quarter: 2013Q1

REPORT INFORMATION
  Report Type: Spontaneous
  Country: NO (occurrence: NO)
  Receive Date: 20130206
  Receipt Date: 20130206
  Transmission Date: 20140127
  Serious: Yes (Death)
  Sender: FDA-Public Use
  Company Number: NO-B.I. PHARMACEUTICALS,INC./RIDGEFIELD-2013-SW-00069NO

PATIENT
  Age: 94 Year
  Sex: Male

DRUGS (1)
  1. ASASANTIN RETARD [Suspect]

REACTIONS (1)
  - Gastric ulcer [Fatal]
